FAERS Safety Report 6309908-3 (Version None)
Quarter: 2009Q3

REPORT INFORMATION
  Report Type: 
  Country: None (occurrence: None)
  Receive Date: 20090814
  Receipt Date: 20090805
  Transmission Date: 20100115
  Serious: Yes (Hospitalization)
  Sender: FDA-Public Use
  Company Number: A0797206A

PATIENT
  Age: 18 Year
  Sex: Female

DRUGS (4)
  1. VENTOLIN [Suspect]
     Indication: ASTHMA
     Dates: start: 20080227
  2. MOTRIN [Concomitant]
  3. ZITHROMAX [Concomitant]
  4. ROBITUSSIN W/CODEINE [Concomitant]

REACTIONS (7)
  - BRONCHITIS [None]
  - DECREASED APPETITE [None]
  - EATING DISORDER [None]
  - INSOMNIA [None]
  - SPEECH DISORDER [None]
  - TANGENTIALITY [None]
  - WEIGHT DECREASED [None]
